FAERS Safety Report 10076951 (Version 1)
Quarter: 2014Q2

REPORT INFORMATION
  Report Type: Spontaneous
  Country: JP (occurrence: JP)
  Receive Date: 20140414
  Receipt Date: 20140414
  Transmission Date: 20141212
  Serious: Yes (Death)
  Sender: FDA-Public Use
  Company Number: JP-GLAXOSMITHKLINE-B0985221A

PATIENT
  Age: 70 Year
  Sex: Male

DRUGS (1)
  1. VOTRIENT 200MG [Suspect]
     Indication: SOFT TISSUE SARCOMA
     Dosage: 600MG PER DAY
     Route: 048
     Dates: start: 20140402

REACTIONS (1)
  - Disease progression [Fatal]
